FAERS Safety Report 17542322 (Version 2)
Quarter: 2020Q2

REPORT INFORMATION
  Report Type: Spontaneous
  Country: DE (occurrence: DE)
  Receive Date: 20200313
  Receipt Date: 20200527
  Transmission Date: 20200713
  Serious: Yes (Disabling, Other)
  Sender: FDA-Public Use
  Company Number: DE-ROCHE-2567439

PATIENT
  Sex: Female

DRUGS (5)
  1. COTRIM FORTE [Concomitant]
     Active Substance: SULFAMETHOXAZOLE\TRIMETHOPRIM
     Indication: PROPHYLAXIS
     Dosage: ON MONDAY, WEDNESDAY, FRIDAY
     Route: 048
     Dates: start: 201805, end: 20190830
  2. GAZYVARO [Suspect]
     Active Substance: OBINUTUZUMAB
     Indication: B-CELL LYMPHOMA
     Route: 042
     Dates: start: 201811, end: 20190716
  3. PANTOZOL [Concomitant]
     Active Substance: PANTOPRAZOLE SODIUM
     Route: 048
     Dates: start: 201805, end: 20190830
  4. DEKRISTOL [Concomitant]
     Active Substance: CHOLECALCIFEROL
     Indication: VITAMIN B COMPLEX DEFICIENCY
     Route: 048
     Dates: start: 201902, end: 20190830
  5. NOVALGIN (METAMIZOLE SODIUM) [Concomitant]
     Active Substance: METAMIZOLE SODIUM
     Indication: PAIN
     Route: 065
     Dates: start: 201805, end: 20190830

REACTIONS (5)
  - Hepatitis [Recovering/Resolving]
  - Blood cholesterol increased [Recovering/Resolving]
  - Thrombocytopenia [Unknown]
  - Hepatic steatosis [Unknown]
  - Toxicity to various agents [Not Recovered/Not Resolved]

NARRATIVE: CASE EVENT DATE: 201907
